FAERS Safety Report 21262880 (Version 1)
Quarter: 2022Q3

REPORT INFORMATION
  Report Type: Spontaneous
  Country: FR (occurrence: FR)
  Receive Date: 20220828
  Receipt Date: 20220828
  Transmission Date: 20221027
  Serious: No
  Sender: FDA-Public Use
  Company Number: FR-CELGENE-FRA-20201104403

PATIENT
  Age: 17 Year
  Sex: Male
  Weight: 45.6 kg

DRUGS (13)
  1. THALIDOMIDE [Suspect]
     Active Substance: THALIDOMIDE
     Indication: Crohn^s disease
     Dosage: FREQUENCY TEXT: NOT PROVIDED
     Route: 065
  2. TACROLIMUS [Suspect]
     Active Substance: TACROLIMUS
     Indication: Crohn^s disease
     Dosage: UNK
     Route: 065
  3. TACROLIMUS [Suspect]
     Active Substance: TACROLIMUS
     Dosage: FREQUENCY TEXT: NOT PROVIDED
     Route: 065
  4. INFLIXIMAB [Suspect]
     Active Substance: INFLIXIMAB
     Indication: Crohn^s disease
     Dosage: UNK
     Route: 065
  5. INFLIXIMAB [Suspect]
     Active Substance: INFLIXIMAB
     Dosage: FREQUENCY TEXT: NOT PROVIDED
     Route: 065
  6. IMATINIB [Suspect]
     Active Substance: IMATINIB
     Indication: Crohn^s disease
     Dosage: 400 MG, QD
     Route: 065
  7. AZATHIOPRINE [Suspect]
     Active Substance: AZATHIOPRINE
     Indication: Crohn^s disease
     Dosage: UNK
     Route: 065
  8. AZATHIOPRINE [Suspect]
     Active Substance: AZATHIOPRINE
     Dosage: FREQUENCY TEXT: NOT PROVIDED
     Route: 065
  9. IMATINIB MESYLATE [Suspect]
     Active Substance: IMATINIB MESYLATE
     Indication: Crohn^s disease
     Dosage: 400 MILLIGRAM
     Route: 048
  10. IMATINIB MESYLATE [Suspect]
     Active Substance: IMATINIB MESYLATE
     Indication: Off label use
  11. ADALIMUMAB [Suspect]
     Active Substance: ADALIMUMAB
     Indication: Crohn^s disease
     Dosage: FREQUENCY TEXT: NOT PROVIDED
     Route: 065
  12. MESALAMINE [Concomitant]
     Active Substance: MESALAMINE
     Indication: Crohn^s disease
     Dosage: UNK
     Route: 065
  13. MESALAMINE [Concomitant]
     Active Substance: MESALAMINE
     Dosage: FREQUENCY TEXT: NOT PROVIDED
     Route: 065

REACTIONS (1)
  - No adverse event [Unknown]
